FAERS Safety Report 15535186 (Version 1)
Quarter: 2018Q4

REPORT INFORMATION
  Report Type: Spontaneous
  Country: US (occurrence: US)
  Receive Date: 20181022
  Receipt Date: 20181022
  Transmission Date: 20190205
  Serious: No
  Sender: FDA-Public Use
  Company Number: US-TEVA-2018-US-964440

PATIENT
  Sex: Female

DRUGS (1)
  1. COPAXONE [Suspect]
     Active Substance: GLATIRAMER ACETATE
     Route: 065

REACTIONS (5)
  - Injection site discomfort [Recovered/Resolved]
  - Needle issue [Unknown]
  - Injection site pain [Recovered/Resolved]
  - Chills [Recovered/Resolved]
  - Adverse event [Unknown]
